FAERS Safety Report 10009445 (Version 1)
Quarter: 2014Q1

REPORT INFORMATION
  Report Type: Spontaneous
  Country: US (occurrence: US)
  Receive Date: 20140312
  Receipt Date: 20140312
  Transmission Date: 20141002
  Serious: Yes (Other)
  Sender: FDA-Public Use
  Company Number: US-INCYTE CORPORATION-2012IN001634

PATIENT
  Age: 76 Year
  Sex: Female

DRUGS (6)
  1. JAKAFI [Suspect]
     Indication: MYELOFIBROSIS
     Dosage: 10 MG, BID
     Dates: start: 20120515
  2. ATENOLOL [Concomitant]
  3. LEVOTHYROXINE SODIUM [Concomitant]
  4. ASPIRIN [Concomitant]
     Dosage: 325 MG, UNK
  5. MULTIVITAMIN [Concomitant]
  6. CALCIUM CARBONATE [Concomitant]

REACTIONS (2)
  - Haemoglobin decreased [Unknown]
  - Red blood cell count decreased [Unknown]
